FAERS Safety Report 7058646-0 (Version None)
Quarter: 2010Q4

REPORT INFORMATION
  Report Type: 
  Country: None (occurrence: None)
  Receive Date: 20101022
  Receipt Date: 20101012
  Transmission Date: 20110411
  Serious: Yes (Other)
  Sender: FDA-Public Use
  Company Number: NL-GILEAD-2010-0032695

PATIENT
  Age: 60 Year
  Sex: Male

DRUGS (5)
  1. TRUVADA [Suspect]
     Indication: HIV INFECTION
     Dates: start: 20100101
  2. SULFADIAZINE [Concomitant]
  3. PYRIMETHAMINE [Concomitant]
  4. FOLINEACID [Concomitant]
  5. KALETRA [Concomitant]
     Dates: start: 20100101

REACTIONS (5)
  - HYPERGLYCAEMIA [None]
  - NEPHROPATHY TOXIC [None]
  - OEDEMA PERIPHERAL [None]
  - PARESIS [None]
  - RHABDOMYOLYSIS [None]
